FAERS Safety Report 20961373 (Version 3)
Quarter: 2022Q3

REPORT INFORMATION
  Report Type: Spontaneous
  Country: US (occurrence: US)
  Receive Date: 20220615
  Receipt Date: 20220728
  Transmission Date: 20221027
  Serious: Yes (Other)
  Sender: FDA-Public Use
  Company Number: US-REGENERON PHARMACEUTICALS, INC.-2022-076457

PATIENT
  Sex: Female

DRUGS (1)
  1. EYLEA [Suspect]
     Active Substance: AFLIBERCEPT
     Indication: Macular degeneration
     Dosage: 2 MG, EVERY 6-8 WEEKS, LEFT EYE
     Dates: start: 20220517, end: 20220517

REACTIONS (7)
  - Blindness transient [Recovering/Resolving]
  - Suspected product contamination [Unknown]
  - Eyelid pain [Recovered/Resolved]
  - Eyelid irritation [Recovered/Resolved]
  - Eye inflammation [Recovered/Resolved]
  - Vitreous floaters [Recovering/Resolving]
  - Eye pain [Recovered/Resolved]

NARRATIVE: CASE EVENT DATE: 20220517
